FAERS Safety Report 8215474-8 (Version None)
Quarter: 2012Q1

REPORT INFORMATION
  Report Type: 
  Country: None (occurrence: None)
  Receive Date: 20120316
  Receipt Date: 20120312
  Transmission Date: 20120608
  Serious: Yes (Hospitalization, Other)
  Sender: FDA-Public Use
  Company Number: JP-BAYER-2010-006108

PATIENT
  Age: 69 Year
  Sex: Male
  Weight: 59 kg

DRUGS (7)
  1. KERATINAMIN [Concomitant]
     Indication: PROPHYLAXIS
     Dosage: UNK
     Route: 061
     Dates: start: 20101025, end: 20101214
  2. SUMIFERON [Concomitant]
     Indication: RENAL CELL CARCINOMA
     Dosage: DAILY DOSE 3 MIU
     Route: 058
     Dates: start: 20100910, end: 20100921
  3. NEXAVAR [Suspect]
     Indication: RENAL CANCER
     Dosage: 400 MG, BID
     Route: 048
     Dates: start: 20101101, end: 20101214
  4. OXYCONTIN [Concomitant]
     Indication: PAIN
     Dosage: DAILY DOSE 10 MG
     Route: 048
  5. DIOVAN [Concomitant]
     Indication: HYPERTENSION
     Dosage: DAILY DOSE 80 MG
     Route: 048
  6. MAGNESIUM SULFATE [Concomitant]
     Indication: CONSTIPATION PROPHYLAXIS
     Dosage: DAILY DOSE 1500 MG
     Route: 048
  7. PRIMPERAN TAB [Concomitant]
     Indication: PROPHYLAXIS OF NAUSEA AND VOMITING
     Dosage: DAILY DOSE 15 MG
     Route: 048

REACTIONS (2)
  - HEPATIC FUNCTION ABNORMAL [None]
  - JAUNDICE [None]
